FAERS Safety Report 8044116-X (Version None)
Quarter: 2012Q1

REPORT INFORMATION
  Report Type: 
  Country: None (occurrence: None)
  Receive Date: 20120113
  Receipt Date: 20120103
  Transmission Date: 20120608
  Serious: Yes (Other)
  Sender: FDA-Public Use
  Company Number: BR-JNJFOC-20120101682

PATIENT
  Sex: Male
  Weight: 3 kg

DRUGS (3)
  1. ACETAMINOPHEN [Suspect]
     Indication: NASOPHARYNGITIS
     Route: 048
     Dates: start: 20120101, end: 20120102
  2. INFANT FORMULA [Suspect]
     Indication: ILL-DEFINED DISORDER
     Route: 048
  3. ACETAMINOPHEN [Suspect]
     Route: 048

REACTIONS (1)
  - DIARRHOEA HAEMORRHAGIC [None]
